FAERS Safety Report 6648576-8 (Version None)
Quarter: 2010Q1

REPORT INFORMATION
  Report Type: 
  Country: None (occurrence: None)
  Receive Date: 20100324
  Receipt Date: 20080125
  Transmission Date: 20100710
  Serious: Yes (Death, Life-Threatening, Hospitalization)
  Sender: FDA-Public Use
  Company Number: PHHY2008DE34232

PATIENT
  Sex: Female

DRUGS (31)
  1. PANTOPRAZOLE [Suspect]
     Indication: ABDOMINAL DISCOMFORT
     Dosage: 20 MG/DAY
     Route: 048
     Dates: start: 20030314
  2. TAVEGIL (NCH) [Suspect]
     Indication: DERMATITIS
     Dosage: UNK
     Route: 048
     Dates: start: 20030403, end: 20030409
  3. TAVEGIL (NCH) [Suspect]
     Indication: RASH
  4. ISOPTIN [Suspect]
     Indication: TACHYCARDIA PAROXYSMAL
     Dosage: 2 DF/DAY
  5. ISOPTIN [Suspect]
     Indication: SUPRAVENTRICULAR TACHYCARDIA
     Dosage: 1.5 DF/DAY
     Dates: end: 20030331
  6. METOCLOPRAMIDE [Suspect]
     Indication: NAUSEA
     Dosage: UNK
     Route: 048
     Dates: start: 20030409
  7. METOCLOPRAMIDE [Suspect]
     Indication: VOMITING
  8. PULMICORT [Suspect]
     Indication: CHRONIC OBSTRUCTIVE PULMONARY DISEASE
     Dosage: 2 DF/DAY
     Dates: start: 20030327
  9. PULMICORT [Suspect]
     Dosage: 1 DF/DAY
     Dates: end: 20030329
  10. SEREVENT [Suspect]
     Indication: CHRONIC OBSTRUCTIVE PULMONARY DISEASE
     Dosage: 2 DF/DAY
     Dates: start: 20030327, end: 20030329
  11. EUNERPAN [Suspect]
     Indication: SLEEP DISORDER
     Dosage: UNK
     Dates: start: 20030327, end: 20030330
  12. MARCUMAR [Suspect]
     Indication: PROPHYLAXIS
     Dosage: UNK
     Dates: start: 20030314, end: 20030406
  13. DECORTIN-H [Suspect]
     Indication: DERMATITIS
     Dosage: UNK
     Dates: start: 20030320, end: 20030411
  14. DECORTIN-H [Suspect]
     Indication: RASH
  15. NOVODIGAL [Suspect]
     Indication: TACHYCARDIA PAROXYSMAL
     Dosage: 0.2 MG
     Dates: start: 20030314, end: 20030416
  16. NOVODIGAL [Suspect]
     Indication: SUPRAVENTRICULAR TACHYCARDIA
  17. PLAVIX [Suspect]
     Dosage: UNK
     Dates: start: 20030228, end: 20030101
  18. DYTIDE [Suspect]
     Indication: ESSENTIAL HYPERTENSION
     Dosage: 2 DF/DAY
     Dates: start: 20030314, end: 20030101
  19. TELFAST [Suspect]
     Indication: DERMATITIS
     Dosage: UNK
     Dates: start: 20030409, end: 20030410
  20. TELFAST [Suspect]
     Indication: RASH
  21. INNOHEP [Suspect]
     Dosage: UNK
     Route: 058
     Dates: start: 20030409, end: 20030416
  22. REPELTIN FORTE [Suspect]
     Indication: PRURITUS
     Dosage: 1 DF/DAY
     Dates: start: 20030410, end: 20030416
  23. CORNEREGEL [Suspect]
     Indication: CONJUNCTIVITIS
     Dosage: 3/DAY
     Dates: start: 20030412, end: 20030416
  24. BERODUAL [Suspect]
     Indication: CHRONIC OBSTRUCTIVE PULMONARY DISEASE
     Dosage: 2 DF/DAY
     Dates: start: 20030412, end: 20030416
  25. VALPROIC ACID [Suspect]
     Indication: EPILEPSY
     Dosage: 2 DF/DAY
  26. FRISIUM [Suspect]
     Indication: EPILEPSY
     Dosage: UNK
     Dates: start: 20030416, end: 20030101
  27. DIAZEPAM [Suspect]
     Indication: EPILEPSY
     Dosage: UNK
     Dates: start: 20030331, end: 20030409
  28. TIMONIL [Suspect]
     Indication: EPILEPSY
     Dosage: UNK
     Dates: start: 20030201, end: 20030416
  29. DIGITOXIN INJ [Suspect]
     Indication: SUPRAVENTRICULAR TACHYCARDIA
     Dosage: UNK
     Dates: start: 20030304, end: 20030101
  30. RIVOTRIL [Suspect]
     Indication: EPILEPSY
     Dosage: UNK
     Dates: start: 20030331, end: 20030409
  31. BRONCHORETARD [Suspect]
     Indication: SUPRAVENTRICULAR TACHYCARDIA
     Dosage: UNK
     Dates: start: 20030314, end: 20030101

REACTIONS (6)
  - BLISTER [None]
  - MUCOSAL EROSION [None]
  - NIKOLSKY'S SIGN [None]
  - PRURITUS [None]
  - STEVENS-JOHNSON SYNDROME [None]
  - TOXIC EPIDERMAL NECROLYSIS [None]
